FAERS Safety Report 6049169-6 (Version None)
Quarter: 2009Q1

REPORT INFORMATION
  Report Type: 
  Country: None (occurrence: None)
  Receive Date: 20090123
  Receipt Date: 20090112
  Transmission Date: 20090719
  Serious: Yes (Hospitalization, Other)
  Sender: FDA-Public Use
  Company Number: US-PFIZER INC-2008085225

PATIENT
  Sex: Male
  Weight: 58.957 kg

DRUGS (3)
  1. DILANTIN-125 [Suspect]
  2. CHANTIX [Suspect]
     Dates: start: 20060101
  3. CLONAZEPAM [Concomitant]

REACTIONS (4)
  - ANTICONVULSANT DRUG LEVEL BELOW THERAPEUTIC [None]
  - CONVULSION [None]
  - DRUG INEFFECTIVE [None]
  - MEDICATION ERROR [None]
